FAERS Safety Report 5231236-8 (Version None)
Quarter: 2007Q1

REPORT INFORMATION
  Report Type: 
  Country: None (occurrence: None)
  Receive Date: 20070206
  Receipt Date: 20070119
  Transmission Date: 20070707
  Serious: Yes (Death)
  Sender: FDA-Public Use
  Company Number: CA-JNJFOC-20070100725

PATIENT
  Age: 79 Year
  Sex: Male
  Weight: 105 kg

DRUGS (17)
  1. LEVAQUIN [Suspect]
     Indication: PNEUMONIA ASPIRATION
     Route: 042
  2. GLYBURIDE [Suspect]
     Indication: DRUG USE FOR UNKNOWN INDICATION
     Route: 065
  3. NITROGLYCERIN [Concomitant]
     Indication: DRUG USE FOR UNKNOWN INDICATION
     Route: 061
  4. ALLOPURINOL SODIUM [Concomitant]
     Route: 065
  5. ASPIRIN [Concomitant]
     Route: 065
  6. CLOPIDOGREL [Concomitant]
     Route: 065
  7. DOXAZOSIN MESYLATE [Concomitant]
     Route: 065
  8. LEVOTHYROXINE SODIUM [Concomitant]
     Route: 065
  9. SIMVASTATIN [Concomitant]
     Route: 065
  10. ATENOLOL [Concomitant]
     Route: 065
  11. METOCLOPRAMIDE [Concomitant]
     Route: 065
  12. DILTIAZEM [Concomitant]
     Route: 065
  13. ESCITALOPRAM OXALATE [Concomitant]
     Route: 065
  14. FLUCONAZOLE [Concomitant]
     Route: 065
  15. PANTOPRAZOLE SODIUM [Concomitant]
     Route: 065
  16. SODIUM BICARBONATE [Concomitant]
     Route: 065
  17. MIRTAZAPINE [Concomitant]
     Route: 065

REACTIONS (1)
  - HYPOGLYCAEMIA [None]
